FAERS Safety Report 10757047 (Version 10)
Quarter: 2015Q3

REPORT INFORMATION
  Report Type: Spontaneous
  Country: US (occurrence: US)
  Receive Date: 20150203
  Receipt Date: 20150915
  Transmission Date: 20151125
  Serious: No
  Sender: FDA-Public Use
  Company Number: US-009507513-1502USA000774

PATIENT
  Age: 22 Year
  Sex: Female
  Weight: 72.11 kg

DRUGS (1)
  1. IMPLANON [Suspect]
     Active Substance: ETONOGESTREL
     Indication: CONTRACEPTION
     Dosage: STRENGTH: 68(UNIT PROVIDED); 1 ROD, IN HER LEFT ARM
     Route: 059
     Dates: start: 20111130

REACTIONS (3)
  - Medical device complication [Not Recovered/Not Resolved]
  - Vaginal infection [Unknown]
  - Incorrect drug administration duration [Unknown]

NARRATIVE: CASE EVENT DATE: 20141130
